FAERS Safety Report 6046448-3 (Version None)
Quarter: 2009Q1

REPORT INFORMATION
  Report Type: 
  Country: None (occurrence: None)
  Receive Date: 20090122
  Receipt Date: 20090115
  Transmission Date: 20090719
  Serious: Yes (Death, Life-Threatening, Hospitalization, Other)
  Sender: FDA-Public Use
  Company Number: FR-ELI_LILLY_AND_COMPANY-FR200901002369

PATIENT
  Sex: Female

DRUGS (15)
  1. ALIMTA [Suspect]
     Indication: LUNG ADENOCARCINOMA METASTATIC
     Dosage: 950 MG, UNKNOWN
     Route: 042
     Dates: start: 20080902, end: 20080902
  2. TIENAM [Concomitant]
     Indication: AGRANULOCYTOSIS
     Dosage: 3000 MG, DAILY (1/D)
     Route: 042
     Dates: start: 20080910, end: 20080912
  3. FLUCONAZOLE [Concomitant]
     Dosage: 100 MG, DAILY (1/D)
     Route: 048
     Dates: start: 20080910
  4. FLUCONAZOLE [Concomitant]
     Dosage: 100 MG, 2/D
     Route: 042
     Dates: end: 20080922
  5. FLUCONAZOLE [Concomitant]
     Dosage: 400 MG, DAILY (1/D)
     Route: 065
     Dates: end: 20080922
  6. ZOPHREN [Concomitant]
     Dosage: 16 MG, DAILY (1/D)
     Route: 042
     Dates: start: 20080902, end: 20080918
  7. PRIMPERAN                               /SCH/ [Concomitant]
     Dosage: 3 D/F, DAILY (1/D)
     Route: 042
     Dates: start: 20080910, end: 20080917
  8. AMLOR [Concomitant]
     Indication: HYPERTENSION
     Dosage: UNK, UNKNOWN
     Route: 065
  9. ALDACTONE [Concomitant]
     Indication: HYPERTENSION
     Dosage: UNK, UNKNOWN
     Route: 065
  10. ADVIL LIQUI-GELS [Concomitant]
     Indication: PAIN
     Dosage: 1 D/F, DAILY AS NEEDED
     Route: 065
  11. FUNGIZONE [Concomitant]
  12. OFLOXACIN [Concomitant]
     Indication: BACTERIAL INFECTION
     Dosage: UNK, UNKNOWN
     Route: 065
  13. CLARITIN [Concomitant]
     Dosage: UNK, UNKNOWN
     Route: 065
  14. VFEND [Concomitant]
     Dosage: UNK, UNKNOWN
     Route: 065
  15. POLARAMINE [Concomitant]
     Dosage: UNK, UNKNOWN
     Route: 065

REACTIONS (10)
  - ESCHERICHIA URINARY TRACT INFECTION [None]
  - FUNGAL INFECTION [None]
  - LEUKOPENIA [None]
  - LUNG INFECTION [None]
  - LYMPHANGIOSIS CARCINOMATOSA [None]
  - METABOLIC ACIDOSIS [None]
  - RENAL FAILURE ACUTE [None]
  - STEVENS-JOHNSON SYNDROME [None]
  - THROMBOCYTOPENIA [None]
  - TOXIC SKIN ERUPTION [None]
